FAERS Safety Report 4830971-0 (Version None)
Quarter: 2005Q4

REPORT INFORMATION
  Report Type: 
  Country: None (occurrence: None)
  Receive Date: 20051114
  Receipt Date: 20051024
  Transmission Date: 20060501
  Serious: Yes (Other)
  Sender: FDA-Public Use
  Company Number: 6018134

PATIENT
  Age: 51 Year
  Sex: Male

DRUGS (4)
  1. BISOPROLOL FUMARATE [Suspect]
     Indication: HYPERTENSION
     Dosage: DOSAGE FORMS (DOSAGE FORMS) ORAL
     Route: 048
     Dates: start: 20041001
  2. BISOPROLOL FUMARATE [Suspect]
     Indication: VENTRICULAR EXTRASYSTOLES
     Dosage: DOSAGE FORMS (DOSAGE FORMS) ORAL
     Route: 048
     Dates: start: 20041001
  3. KARDEGIC (ORAL POWDER) (ACETYLSALICYLATE LYSINE) [Suspect]
     Dosage: DOSAGE FORMS (DOSAGE FORMS) ORAL
     Route: 048
  4. COZAAR [Suspect]
     Dosage: DOSAGE FORMS (DOSAGE FORMS) ORAL
     Route: 048

REACTIONS (2)
  - DEAFNESS UNILATERAL [None]
  - TINNITUS [None]
